FAERS Safety Report 4366652-X (Version None)
Quarter: 2004Q2

REPORT INFORMATION
  Report Type: 
  Country: None (occurrence: None)
  Receive Date: 20040527
  Receipt Date: 20040205
  Transmission Date: 20050107
  Serious: No
  Sender: FDA-Public Use
  Company Number: US-GLAXOSMITHKLINE-A0496780A

PATIENT
  Age: 89 Year
  Sex: Male

DRUGS (7)
  1. AVODART [Suspect]
     Indication: BENIGN PROSTATIC HYPERPLASIA
     Dosage: .5MG PER DAY
     Route: 048
  2. CARDURA [Concomitant]
  3. PRILOSEC [Concomitant]
  4. XANAX [Concomitant]
  5. ALEVE [Concomitant]
  6. TYLENOL [Concomitant]
  7. MULTIVITAMIN [Concomitant]

REACTIONS (1)
  - DRUG INEFFECTIVE [None]
